FAERS Safety Report 8051322-7 (Version None)
Quarter: 2012Q1

REPORT INFORMATION
  Report Type: 
  Country: None (occurrence: None)
  Receive Date: 20120117
  Receipt Date: 20120113
  Transmission Date: 20120608
  Serious: Yes (Hospitalization)
  Sender: FDA-Public Use
  Company Number: US-ROCHE-1002587

PATIENT
  Age: 63 Year
  Sex: Female
  Weight: 122.73 kg

DRUGS (4)
  1. ARIXTRA [Concomitant]
  2. AVASTIN [Suspect]
     Indication: ENDOMETRIAL CANCER
     Dates: start: 20110822
  3. CARBOPLATIN [Suspect]
     Indication: ENDOMETRIAL CANCER
     Route: 065
     Dates: start: 20110822
  4. PACLITAXEL [Suspect]
     Indication: ENDOMETRIAL CANCER
     Route: 065
     Dates: start: 20110822

REACTIONS (12)
  - HYPOMAGNESAEMIA [None]
  - HAEMOGLOBIN DECREASED [None]
  - HYPOALBUMINAEMIA [None]
  - NAUSEA [None]
  - HYPOCALCAEMIA [None]
  - DIARRHOEA [None]
  - DEHYDRATION [None]
  - VOMITING [None]
  - RENAL FAILURE ACUTE [None]
  - ANAEMIA [None]
  - BLOOD CREATININE INCREASED [None]
  - HYPOKALAEMIA [None]
